FAERS Safety Report 19378653 (Version 1)
Quarter: 2021Q2

REPORT INFORMATION
  Report Type: Report from Study
  Country: US (occurrence: US)
  Receive Date: 20210606
  Receipt Date: 20210606
  Transmission Date: 20210717
  Serious: Yes (Death, Hospitalization, Other)
  Sender: FDA-Public Use
  Company Number: US-SA-2021SA187155

PATIENT
  Age: 32 Year
  Sex: Male

DRUGS (12)
  1. ACICLOVIR [Concomitant]
     Active Substance: ACYCLOVIR
     Dosage: 200 MG, BID
  2. DIVALPROEX [Concomitant]
     Active Substance: DIVALPROEX SODIUM
     Dosage: 1000 MG, HS
  3. COENZYME Q10 [Concomitant]
     Active Substance: DIETARY SUPPLEMENT\UBIDECARENONE
     Dosage: UNK UNK, QD
  4. ALPHA LIPOIC ACID [Concomitant]
     Active Substance: .ALPHA.-LIPOIC ACID
     Dosage: 600 MG, BID
  5. VITAMIN D3 [Concomitant]
     Active Substance: CHOLECALCIFEROL
     Dosage: 2000 U, QD
  6. DALFAMPRIDINE. [Concomitant]
     Active Substance: DALFAMPRIDINE
     Dosage: 10 MG, Q12H
  7. ALEMTUZUMAB [Suspect]
     Active Substance: ALEMTUZUMAB
     Indication: MULTIPLE SCLEROSIS
     Dosage: 12 MG, QD
     Route: 041
     Dates: start: 20191007, end: 20191009
  8. ALEMTUZUMAB [Suspect]
     Active Substance: ALEMTUZUMAB
     Dosage: 12 MG, QD
     Route: 041
     Dates: start: 20180917, end: 20180917
  9. FLUOXETINE [Concomitant]
     Active Substance: FLUOXETINE HYDROCHLORIDE
     Dosage: 40 MG, QD
  10. MULTIVITAMIN [ASCORBIC ACID;BIOTIN;CALCIUM PANTOTHENATE;CYANOCOBALAMIN [Concomitant]
     Active Substance: VITAMINS
     Dosage: UNK UNK, QD
     Route: 048
  11. ALEMTUZUMAB [Suspect]
     Active Substance: ALEMTUZUMAB
     Dosage: 12 MG, QD
     Route: 041
     Dates: start: 20180911, end: 20180914
  12. VITAMIN E [Concomitant]
     Active Substance: .ALPHA.-TOCOPHEROL
     Dosage: UNK UNK, QD
     Route: 048

REACTIONS (26)
  - Coombs test positive [Fatal]
  - Asthenia [Fatal]
  - CD4 lymphocytes decreased [Unknown]
  - Anaemia [Unknown]
  - Haemolytic anaemia [Unknown]
  - Dehydration [Unknown]
  - Lactic acidosis [Unknown]
  - Wheezing [Recovered/Resolved]
  - Sinus tachycardia [Unknown]
  - Cardiac arrest [Fatal]
  - Acute kidney injury [Unknown]
  - Muscular weakness [Unknown]
  - Illness [Fatal]
  - Hyperbilirubinaemia [Unknown]
  - Urticaria [Recovered/Resolved]
  - Jaundice [Unknown]
  - Nausea [Fatal]
  - Red blood cell count increased [Unknown]
  - Haemoglobin increased [Unknown]
  - Crystal urine present [Unknown]
  - Blood creatinine increased [Unknown]
  - Depression [Unknown]
  - Fatigue [Unknown]
  - Coombs positive haemolytic anaemia [Fatal]
  - Vomiting [Fatal]
  - Haemoglobin decreased [Fatal]

NARRATIVE: CASE EVENT DATE: 20191017
